FAERS Safety Report 4840358-2 (Version None)
Quarter: 2005Q4

REPORT INFORMATION
  Report Type: 
  Country: None (occurrence: None)
  Receive Date: 20051025
  Receipt Date: 20050511
  Transmission Date: 20060501
  Serious: Yes (Life-Threatening, Hospitalization)
  Sender: FDA-Public Use
  Company Number: US-JNJFOC-20050504037

PATIENT
  Age: 28 Year
  Sex: Female
  Weight: 45.3597 kg

DRUGS (3)
  1. FLEXERIL [Suspect]
     Indication: DRUG USE FOR UNKNOWN INDICATION
     Dosage: ORAL
     Route: 048
     Dates: start: 20050510, end: 20050510
  2. IBUPROFEN 600 MG (TABLETS) [Concomitant]
  3. SKELAXIN [Concomitant]

REACTIONS (3)
  - LOSS OF CONSCIOUSNESS [None]
  - OVERDOSE [None]
  - POOR QUALITY DRUG ADMINISTERED [None]
